FAERS Safety Report 26009771 (Version 1)
Quarter: 2025Q4

REPORT INFORMATION
  Report Type: Spontaneous
  Country: GB (occurrence: GB)
  Receive Date: 20251107
  Receipt Date: 20251107
  Transmission Date: 20260118
  Serious: Yes (Other)
  Sender: HETERO
  Company Number: GB-MHRA-TPP3685192C27777531YC1761218906155

PATIENT
  Age: 70 Year
  Sex: Female
  Weight: 89 kg

DRUGS (5)
  1. ROSUVASTATIN [Suspect]
     Active Substance: ROSUVASTATIN
     Indication: Hypercholesterolaemia
     Dosage: 1 DOSAGE FORM, QD
     Route: 065
     Dates: start: 20250930
  2. EZETIMIBE [Concomitant]
     Active Substance: EZETIMIBE
     Indication: Hypercholesterolaemia
     Dosage: 1 DOSAGE FORM, QD
     Route: 065
     Dates: start: 20240926
  3. ATENOLOL [Concomitant]
     Active Substance: ATENOLOL
     Indication: Ill-defined disorder
     Dosage: 1 DOSAGE FORM, Q.A.M.
     Route: 065
     Dates: start: 20241217
  4. ENALAPRIL [Concomitant]
     Active Substance: ENALAPRIL
     Indication: Ill-defined disorder
     Dosage: 1 DOSAGE FORM, BID
     Route: 065
     Dates: start: 20241217
  5. ALLOPURINOL [Concomitant]
     Active Substance: ALLOPURINOL
     Indication: Prophylaxis
     Dosage: 2 DOSAGE FORM, Q.D. (TWO A DAY TO HELP PREVENT GOUT)
     Route: 065
     Dates: start: 20250212

REACTIONS (2)
  - Joint swelling [Recovering/Resolving]
  - Myalgia [Recovering/Resolving]
